FAERS Safety Report 20924630 (Version 2)
Quarter: 2022Q3

REPORT INFORMATION
  Report Type: Spontaneous
  Country: US (occurrence: US)
  Receive Date: 20220607
  Receipt Date: 20220908
  Transmission Date: 20221027
  Serious: Yes (Other)
  Sender: FDA-Public Use
  Company Number: US-AMGEN-USASP2022089856

PATIENT
  Age: 68 Year
  Sex: Female

DRUGS (1)
  1. PROLIA [Suspect]
     Active Substance: DENOSUMAB
     Indication: Osteoporosis postmenopausal
     Dosage: UNK, Q6MO
     Route: 065

REACTIONS (5)
  - Osteonecrosis of jaw [Unknown]
  - Osteomyelitis [Unknown]
  - Oroantral fistula [Unknown]
  - Oral infection [Recovering/Resolving]
  - Tooth loss [Unknown]

NARRATIVE: CASE EVENT DATE: 20200201
